FAERS Safety Report 8832478 (Version 1)
Quarter: 2012Q4

REPORT INFORMATION
  Report Type: Spontaneous
  Country: US (occurrence: None)
  Receive Date: 20121009
  Receipt Date: 20121009
  Transmission Date: 20130627
  Serious: Yes (Other)
  Sender: FDA-Public Use
  Company Number: None

PATIENT
  Sex: Male

DRUGS (1)
  1. TRILEPTAL [Suspect]
     Route: 048
     Dates: start: 20070502, end: 20080122

REACTIONS (2)
  - Convulsion [None]
  - Therapeutic response unexpected with drug substitution [None]
